FAERS Safety Report 20077274 (Version 1)
Quarter: 2021Q4

REPORT INFORMATION
  Report Type: Spontaneous
  Country: US (occurrence: None)
  Receive Date: 20211116
  Receipt Date: 20211116
  Transmission Date: 20220303
  Serious: No
  Sender: FDA-Public Use
  Company Number: None

PATIENT
  Age: 62 Year
  Sex: Female
  Weight: 59 kg

DRUGS (2)
  1. DOCETAXEL [Suspect]
     Active Substance: DOCETAXEL
     Indication: Lung cancer metastatic
     Dosage: OTHER FREQUENCY : EVERY 21 DAYS;?
     Route: 041
     Dates: start: 20210929, end: 20210929
  2. CYRAMZA [Concomitant]
     Active Substance: RAMUCIRUMAB
     Dates: start: 20211110, end: 20211110

REACTIONS (4)
  - Erythema [None]
  - Pruritus [None]
  - Feeling hot [None]
  - Skin hyperpigmentation [None]

NARRATIVE: CASE EVENT DATE: 20211110
